FAERS Safety Report 6826964-4 (Version None)
Quarter: 2010Q3

REPORT INFORMATION
  Report Type: 
  Country: None (occurrence: None)
  Receive Date: 20100709
  Receipt Date: 20100628
  Transmission Date: 20110219
  Serious: Yes (Hospitalization, Other)
  Sender: FDA-Public Use
  Company Number: US-JNJFOC-20100601597

PATIENT
  Sex: Male
  Weight: 47.63 kg

DRUGS (7)
  1. REMICADE [Suspect]
     Indication: CROHN'S DISEASE
     Dosage: 500 MG
     Route: 042
  2. REMICADE [Suspect]
     Dosage: 300 MG
     Route: 042
  3. PREDNISONE [Concomitant]
     Indication: CROHN'S DISEASE
  4. DIPHENHYDRAMINE [Concomitant]
     Indication: PREMEDICATION
     Route: 048
  5. DIPHENHYDRAMINE [Concomitant]
     Route: 048
  6. ACETAMINOPHEN [Concomitant]
     Indication: PREMEDICATION
     Route: 048
  7. ACETAMINOPHEN [Concomitant]
     Route: 048

REACTIONS (3)
  - HAEMOGLOBIN DECREASED [None]
  - RECTAL HAEMORRHAGE [None]
  - WEIGHT DECREASED [None]
